FAERS Safety Report 7225152-X (Version None)
Quarter: 2011Q1

REPORT INFORMATION
  Report Type: 
  Country: None (occurrence: None)
  Receive Date: 20110113
  Receipt Date: 20110110
  Transmission Date: 20110831
  Serious: Yes (Death)
  Sender: FDA-Public Use
  Company Number: A0904142A

PATIENT
  Age: 86 Year
  Sex: Male

DRUGS (1)
  1. VENTOLIN [Suspect]
     Route: 055
     Dates: start: 20101101

REACTIONS (2)
  - CARDIAC FAILURE [None]
  - DEATH [None]
